FAERS Safety Report 15750191 (Version 1)
Quarter: 2018Q4

REPORT INFORMATION
  Report Type: Spontaneous
  Country: ES (occurrence: ES)
  Receive Date: 20181221
  Receipt Date: 20181221
  Transmission Date: 20190205
  Serious: Yes (Other)
  Sender: FDA-Public Use
  Company Number: ES-ALLERGAN-1858299US

PATIENT
  Sex: Female

DRUGS (1)
  1. ESCITALOPRAM OXALATE - BP [Suspect]
     Active Substance: ESCITALOPRAM OXALATE
     Indication: PRODUCT USED FOR UNKNOWN INDICATION
     Dosage: OVERDOSE: 30 MG, TOTAL
     Route: 048
     Dates: start: 201812, end: 201812

REACTIONS (3)
  - Overdose [Unknown]
  - Medication error [Unknown]
  - Hypotension [Unknown]

NARRATIVE: CASE EVENT DATE: 201812
